FAERS Safety Report 17899549 (Version 4)
Quarter: 2021Q4

REPORT INFORMATION
  Report Type: Report from Study
  Country: None (occurrence: US)
  Receive Date: 20200616
  Receipt Date: 20211013
  Transmission Date: 20220303
  Serious: Yes (Other)
  Sender: FDA-Public Use
  Company Number: US-ABBVIE-20P-163-3313575-00

PATIENT
  Age: 94 Year
  Sex: Female

DRUGS (5)
  1. IMBRUVICA [Suspect]
     Active Substance: IBRUTINIB
     Indication: Chronic lymphocytic leukaemia
     Route: 048
     Dates: start: 20160609
  2. IMBRUVICA [Suspect]
     Active Substance: IBRUTINIB
     Indication: Chronic lymphocytic leukaemia
     Route: 048
     Dates: start: 201606
  3. IMBRUVICA [Suspect]
     Active Substance: IBRUTINIB
     Route: 048
  4. IMBRUVICA [Suspect]
     Active Substance: IBRUTINIB
     Route: 048
     Dates: start: 201607
  5. IMBRUVICA [Suspect]
     Active Substance: IBRUTINIB
     Route: 048
     Dates: start: 201607

REACTIONS (18)
  - Arterial occlusive disease [Unknown]
  - Influenza like illness [Unknown]
  - Blood sodium decreased [Unknown]
  - Dry mouth [Unknown]
  - Rhinorrhoea [Unknown]
  - Dry mouth [Recovering/Resolving]
  - Hypophagia [Unknown]
  - Hypotension [Unknown]
  - Cognitive disorder [Not Recovered/Not Resolved]
  - Fluid intake reduced [Unknown]
  - Neuralgia [Unknown]
  - Stubbornness [Unknown]
  - Depression [Recovering/Resolving]
  - Asthenia [Unknown]
  - Fatigue [Not Recovered/Not Resolved]
  - Pyrexia [Unknown]
  - Allergic cough [Unknown]
  - Diarrhoea [Unknown]

NARRATIVE: CASE EVENT DATE: 20200201
